FAERS Safety Report 22251141 (Version 1)
Quarter: 2023Q2

REPORT INFORMATION
  Report Type: Spontaneous
  Country: US (occurrence: None)
  Receive Date: 20230425
  Receipt Date: 20230425
  Transmission Date: 20230722
  Serious: Yes (Hospitalization, Other)
  Sender: FDA-Public Use
  Company Number: None

PATIENT
  Age: 28 Year
  Sex: Male
  Weight: 144 kg

DRUGS (22)
  1. TECARTUS [Suspect]
     Active Substance: BREXUCABTAGENE AUTOLEUCEL
     Indication: Acute lymphocytic leukaemia
     Dosage: OTHER FREQUENCY : ONCE;?
     Route: 042
  2. ACETAMINOPHEN [Concomitant]
     Active Substance: ACETAMINOPHEN
     Dates: start: 20230119, end: 20230119
  3. BENADRYL [Concomitant]
     Active Substance: DIPHENHYDRAMINE HYDROCHLORIDE
     Dates: start: 20230119, end: 20230119
  4. ZOFRAN [Concomitant]
     Active Substance: ONDANSETRON HYDROCHLORIDE
     Dates: start: 20230119, end: 20230125
  5. Potassium Chloride- [Concomitant]
     Dates: start: 20230121, end: 20230124
  6. MEROPENEM [Concomitant]
     Active Substance: MEROPENEM
     Dates: start: 20230123, end: 20230126
  7. TOCILIZUMAB [Concomitant]
     Active Substance: TOCILIZUMAB
     Dates: start: 20230123, end: 20230124
  8. SODIUM CHLORIDE [Concomitant]
     Active Substance: SODIUM CHLORIDE
     Dates: start: 20230119, end: 20230130
  9. GRANISETRON [Concomitant]
     Active Substance: GRANISETRON
     Dates: start: 20230124, end: 20230124
  10. MAGNESIUM SULFATE [Concomitant]
     Active Substance: MAGNESIUM SULFATE
     Dates: start: 20230124, end: 20230124
  11. Insulin Human Nph [Concomitant]
     Dates: start: 20230124, end: 20230124
  12. Proochlorperazine [Concomitant]
     Dates: start: 20230119, end: 20230124
  13. MELATONIN [Concomitant]
     Active Substance: MELATONIN
     Dates: start: 20230119, end: 20230124
  14. Dextrose / Sodium [Concomitant]
     Dates: start: 20230119, end: 20230127
  15. ALLOPURINOL [Concomitant]
     Active Substance: ALLOPURINOL
     Dates: start: 20230119, end: 20230125
  16. CHLORHEXIDINE GLUCONATE [Concomitant]
     Active Substance: CHLORHEXIDINE GLUCONATE
     Dates: start: 20230119, end: 20230208
  17. LEVETIRACETAM [Concomitant]
     Active Substance: LEVETIRACETAM
     Dates: start: 20230119, end: 20230126
  18. VALACYCLOVIR HYDROCHLORIDE [Concomitant]
     Active Substance: VALACYCLOVIR HYDROCHLORIDE
     Dates: start: 20230120, end: 20230126
  19. DEXAMETHASONE [Concomitant]
     Active Substance: DEXAMETHASONE
     Dates: start: 20230124, end: 20230126
  20. INSULIN ASPART [Concomitant]
     Active Substance: INSULIN ASPART
     Dates: start: 20230124, end: 20230126
  21. Acetaminophen / Butalbital / Caffeine [Concomitant]
     Dates: start: 20230125, end: 20230125
  22. LORAZEPAM [Concomitant]
     Active Substance: LORAZEPAM
     Dates: start: 20230125, end: 20230126

REACTIONS (1)
  - Immune effector cell-associated neurotoxicity syndrome [None]

NARRATIVE: CASE EVENT DATE: 20230126
